FAERS Safety Report 10838109 (Version 1)
Quarter: 2015Q1

REPORT INFORMATION
  Report Type: Report from Study
  Country: US (occurrence: US)
  Receive Date: 20150219
  Receipt Date: 20150219
  Transmission Date: 20150721
  Serious: No
  Sender: FDA-Public Use
  Company Number: US-ABBVIE-14P-163-1224348-00

PATIENT
  Age: 26 Year
  Sex: Female

DRUGS (5)
  1. HUMIRA [Suspect]
     Active Substance: ADALIMUMAB
     Indication: CROHN^S DISEASE
     Dates: start: 20140320, end: 20140320
  2. HUMIRA [Suspect]
     Active Substance: ADALIMUMAB
     Dates: start: 20140403, end: 20140403
  3. HUMIRA [Suspect]
     Active Substance: ADALIMUMAB
  4. ALPRAZOLAM. [Concomitant]
     Active Substance: ALPRAZOLAM
     Indication: PRODUCT USED FOR UNKNOWN INDICATION
  5. PERCOCET [Concomitant]
     Active Substance: ACETAMINOPHEN\OXYCODONE HYDROCHLORIDE
     Indication: CROHN^S DISEASE

REACTIONS (5)
  - Menstruation delayed [Unknown]
  - Migraine [Recovered/Resolved]
  - Dry skin [Not Recovered/Not Resolved]
  - Muscle spasms [Unknown]
  - Nausea [Recovered/Resolved]

NARRATIVE: CASE EVENT DATE: 20140320
